FAERS Safety Report 16544894 (Version 1)
Quarter: 2019Q3

REPORT INFORMATION
  Report Type: Report from Study
  Country: US (occurrence: US)
  Receive Date: 20190709
  Receipt Date: 20190709
  Transmission Date: 20191004
  Serious: Yes (Other)
  Sender: FDA-Public Use
  Company Number: US-JNJFOC-20161023171

PATIENT
  Age: 64 Year
  Sex: Male

DRUGS (6)
  1. IMBRUVICA [Suspect]
     Active Substance: IBRUTINIB
     Route: 048
     Dates: start: 20161228
  2. IMBRUVICA [Suspect]
     Active Substance: IBRUTINIB
     Route: 065
  3. IMBRUVICA [Suspect]
     Active Substance: IBRUTINIB
     Route: 065
  4. IMBRUVICA [Suspect]
     Active Substance: IBRUTINIB
     Route: 065
  5. IMBRUVICA [Suspect]
     Active Substance: IBRUTINIB
     Indication: CHRONIC LYMPHOCYTIC LEUKAEMIA
     Route: 048
     Dates: start: 20160830, end: 20161228
  6. IMBRUVICA [Suspect]
     Active Substance: IBRUTINIB
     Route: 048
     Dates: start: 20160830

REACTIONS (16)
  - Conjunctival haemorrhage [Unknown]
  - Dry skin [Not Recovered/Not Resolved]
  - Photophobia [Unknown]
  - Nasopharyngitis [Not Recovered/Not Resolved]
  - Arthritis [Not Recovered/Not Resolved]
  - Peripheral swelling [Not Recovered/Not Resolved]
  - Fatigue [Unknown]
  - Myalgia [Not Recovered/Not Resolved]
  - Arthralgia [Not Recovered/Not Resolved]
  - Pain in extremity [Not Recovered/Not Resolved]
  - Heart rate increased [Unknown]
  - Contusion [Unknown]
  - White blood cell count increased [Recovering/Resolving]
  - Muscle spasms [Not Recovered/Not Resolved]
  - Dry eye [Unknown]
  - Eye pain [Recovered/Resolved]

NARRATIVE: CASE EVENT DATE: 2016
